FAERS Safety Report 7984142-X (Version None)
Quarter: 2011Q4

REPORT INFORMATION
  Report Type: 
  Country: None (occurrence: None)
  Receive Date: 20111216
  Receipt Date: 20111212
  Transmission Date: 20120403
  Serious: Yes (Hospitalization, Disabling)
  Sender: FDA-Public Use
  Company Number: FR-PFIZER INC-2011301664

PATIENT
  Age: 62 Year
  Sex: Male

DRUGS (2)
  1. VIAGRA [Suspect]
     Dosage: 50 MG, 3 TO 4X/WEEK
     Route: 048
     Dates: start: 20070101, end: 20111023
  2. FLECAINIDE ACETATE [Concomitant]
     Indication: ATRIAL FIBRILLATION
     Dosage: 200 MG, 1X/DAY IN THE EVENING
     Route: 048
     Dates: start: 20070101

REACTIONS (1)
  - RETINAL VASCULAR OCCLUSION [None]
